FAERS Safety Report 9539577 (Version 2)
Quarter: 2013Q3

REPORT INFORMATION
  Report Type: Report from Study
  Country: US (occurrence: US)
  Receive Date: 20130920
  Receipt Date: 20130926
  Transmission Date: 20140515
  Serious: Yes (Hospitalization)
  Sender: FDA-Public Use
  Company Number: US-JNJFOC-20130908359

PATIENT
  Age: 16 Year
  Sex: Female
  Weight: 63.7 kg

DRUGS (3)
  1. REMICADE [Suspect]
     Indication: CROHN^S DISEASE
     Route: 042
     Dates: start: 20091231
  2. HUMIRA [Concomitant]
     Route: 065
     Dates: start: 20121024
  3. IMITREX [Concomitant]
     Route: 045

REACTIONS (1)
  - Crohn^s disease [Recovered/Resolved]
